FAERS Safety Report 13370614 (Version 1)
Quarter: 2017Q1

REPORT INFORMATION
  Report Type: Spontaneous
  Country: US (occurrence: US)
  Receive Date: 20170324
  Receipt Date: 20170324
  Transmission Date: 20170429
  Serious: No
  Sender: FDA-Public Use
  Company Number: US-ROCHE-1044354

PATIENT
  Sex: Female

DRUGS (6)
  1. NASACORT [Concomitant]
     Active Substance: TRIAMCINOLONE ACETONIDE
     Indication: RHINITIS ALLERGIC
     Route: 065
     Dates: start: 20091105
  2. XOLAIR [Suspect]
     Active Substance: OMALIZUMAB
     Indication: ASTHMA
     Route: 058
     Dates: start: 20080723
  3. VENTOLIN HFA [Concomitant]
     Active Substance: ALBUTEROL SULFATE
     Route: 065
     Dates: start: 20011214
  4. ACIPHEX [Concomitant]
     Active Substance: RABEPRAZOLE SODIUM
     Indication: GASTROOESOPHAGEAL REFLUX DISEASE
  5. FLUOXETINE HCL [Concomitant]
     Active Substance: FLUOXETINE HYDROCHLORIDE
     Indication: DEPRESSION
  6. SYMBICORT [Concomitant]
     Active Substance: BUDESONIDE\FORMOTEROL FUMARATE DIHYDRATE
     Route: 065

REACTIONS (4)
  - Arthropathy [Unknown]
  - Back pain [Unknown]
  - Arthralgia [Unknown]
  - Pain in extremity [Unknown]
